FAERS Safety Report 22191900 (Version 2)
Quarter: 2023Q2

REPORT INFORMATION
  Report Type: Report from Study
  Country: CA (occurrence: CA)
  Receive Date: 20230410
  Receipt Date: 20230502
  Transmission Date: 20230721
  Serious: Yes (Death, Other)
  Sender: FDA-Public Use
  Company Number: CA-AstraZeneca-2023A079393

PATIENT
  Sex: Female

DRUGS (1)
  1. ENHERTU [Suspect]
     Active Substance: FAM-TRASTUZUMAB DERUXTECAN-NXKI
     Indication: Breast cancer
     Dosage: 300 MG, ONCE EVERY 3 WK
     Route: 042
     Dates: start: 20230222, end: 2023

REACTIONS (1)
  - Death [Fatal]

NARRATIVE: CASE EVENT DATE: 20230101
